FAERS Safety Report 8862892 (Version 1)
Quarter: 2012Q4

REPORT INFORMATION
  Report Type: 
  Country: CN (occurrence: CN)
  Receive Date: 20121026
  Receipt Date: 20121026
  Transmission Date: 20130627
  Serious: Yes (Other)
  Sender: FDA-Public Use
  Company Number: CN-JNJFOC-20121012358

PATIENT

DRUGS (7)
  1. DOXORUBICIN [Suspect]
     Indication: MALIGNANT ASCITES
     Dosage: of body surface
     Route: 033
  2. CISPLATIN [Suspect]
     Indication: MALIGNANT ASCITES
     Dosage: of body surface
     Route: 033
  3. MITOMYCIN C [Suspect]
     Indication: MALIGNANT ASCITES
     Dosage: of body surface area
     Route: 033
  4. PETHIDINE HYDROCHLORIDE [Concomitant]
     Indication: PRODUCT USED FOR UNKNOWN INDICATION
     Route: 030
  5. PROMETHAZINE HYDROCHLORIDE [Concomitant]
     Indication: PRODUCT USED FOR UNKNOWN INDICATION
     Route: 030
  6. PROPOFOL [Concomitant]
     Indication: ANAESTHESIA
     Dosage: given via a continuous vein pump with dose of 3-8 ml/ hour adjusted according to patient status
     Route: 042
  7. LIDOCAINE [Concomitant]
     Indication: ANAESTHESIA
     Dosage: 0.5 % locally before the infusion
     Route: 065

REACTIONS (9)
  - Bone marrow failure [Recovered/Resolved]
  - Ascites [Unknown]
  - Gastrointestinal disorder [Recovered/Resolved]
  - Pyrexia [Recovered/Resolved]
  - Abdominal distension [Recovered/Resolved]
  - Abdominal pain [Recovered/Resolved]
  - Incorrect route of drug administration [Unknown]
  - Off label use [Unknown]
  - Wrong technique in drug usage process [Unknown]
